FAERS Safety Report 25688142 (Version 1)
Quarter: 2025Q3

REPORT INFORMATION
  Report Type: Spontaneous
  Country: EU (occurrence: EU)
  Receive Date: 20250818
  Receipt Date: 20250818
  Transmission Date: 20251020
  Serious: Yes (Hospitalization, Other)
  Sender: SANOFI AVENTIS
  Company Number: None

PATIENT
  Age: 71 Year
  Sex: Male
  Weight: 134 kg

DRUGS (1)
  1. LOVENOX [Suspect]
     Active Substance: ENOXAPARIN SODIUM
     Indication: Thrombosis prophylaxis
     Dosage: 4000 IU, QD
     Route: 058
     Dates: start: 20250311, end: 20250318

REACTIONS (3)
  - Pulmonary embolism [Recovered/Resolved]
  - Deep vein thrombosis [Recovered/Resolved]
  - Heparin-induced thrombocytopenia [Recovered/Resolved]

NARRATIVE: CASE EVENT DATE: 20250318
